FAERS Safety Report 19406238 (Version 1)
Quarter: 2021Q2

REPORT INFORMATION
  Report Type: Spontaneous
  Country: US (occurrence: US)
  Receive Date: 20210611
  Receipt Date: 20210611
  Transmission Date: 20210717
  Serious: Yes (Other)
  Sender: FDA-Public Use
  Company Number: US-ASTRAZENECA-2021A500986

PATIENT
  Age: 4836 Day
  Sex: Male
  Weight: 42.4 kg

DRUGS (1)
  1. LOKELMA [Suspect]
     Active Substance: SODIUM ZIRCONIUM CYCLOSILICATE
     Indication: NEOPLASM
     Route: 048
     Dates: start: 20201224, end: 20210602

REACTIONS (6)
  - Pain in extremity [Unknown]
  - Alopecia [Unknown]
  - Rash pruritic [Unknown]
  - Blood creatine phosphokinase increased [Unknown]
  - Arthralgia [Unknown]
  - Hair colour changes [Unknown]

NARRATIVE: CASE EVENT DATE: 20210525
